FAERS Safety Report 6577538-4 (Version None)
Quarter: 2010Q1

REPORT INFORMATION
  Report Type: 
  Country: None (occurrence: None)
  Receive Date: 20100211
  Receipt Date: 20100128
  Transmission Date: 20100710
  Serious: Yes (Life-Threatening)
  Sender: FDA-Public Use
  Company Number: FR-CELGENEUS-056-20484-10020006

PATIENT
  Sex: Female
  Weight: 100 kg

DRUGS (6)
  1. INNOHEP [Suspect]
     Indication: THROMBOPHLEBITIS
     Route: 058
     Dates: start: 20091110, end: 20091208
  2. COUMADIN [Interacting]
     Indication: THROMBOPHLEBITIS
     Route: 048
     Dates: start: 20091110, end: 20091208
  3. PRETERAX [Concomitant]
     Indication: DRUG USE FOR UNKNOWN INDICATION
     Route: 065
  4. INIPOMP [Concomitant]
     Indication: DRUG USE FOR UNKNOWN INDICATION
     Route: 065
  5. TARDYFERON [Concomitant]
     Indication: DRUG USE FOR UNKNOWN INDICATION
     Route: 065
  6. LYRICA [Concomitant]
     Indication: DRUG USE FOR UNKNOWN INDICATION
     Route: 048

REACTIONS (4)
  - ABDOMINAL WALL HAEMATOMA [None]
  - DRUG INTERACTION [None]
  - HAEMORRHAGIC ANAEMIA [None]
  - SHOCK HAEMORRHAGIC [None]
